FAERS Safety Report 9331505 (Version 1)
Quarter: 2013Q2

REPORT INFORMATION
  Report Type: Spontaneous
  Country: US (occurrence: US)
  Receive Date: 20130605
  Receipt Date: 20130605
  Transmission Date: 20140414
  Serious: No
  Sender: FDA-Public Use
  Company Number: US-PFIZER INC-2013167370

PATIENT
  Sex: Female

DRUGS (1)
  1. CHILDREN^S ADVIL [Suspect]
     Dosage: 1600 MG, SINGLE (FOUR TABLETS OF 400MG EACH)
     Dates: start: 2013

REACTIONS (2)
  - Accidental overdose [Unknown]
  - Oral discomfort [Unknown]
